FAERS Safety Report 4559076-3 (Version None)
Quarter: 2005Q1

REPORT INFORMATION
  Report Type: 
  Country: None (occurrence: None)
  Receive Date: 20050121
  Receipt Date: 20050121
  Transmission Date: 20050727
  Serious: Yes (Hospitalization)
  Sender: FDA-Public Use
  Company Number: None

PATIENT
  Age: 81 Year
  Sex: Male
  Weight: 63.5036 kg

DRUGS (1)
  1. WARFARIN SODIUM [Suspect]
     Indication: AORTIC VALVE REPLACEMENT
     Dosage: 1.5 MG     M,W,F Q DAY    ORAL;  3 MG  OTHER DAYS   ORAL
     Route: 048
     Dates: start: 19870110, end: 20050114

REACTIONS (2)
  - FAECAL OCCULT BLOOD POSITIVE [None]
  - INTERNATIONAL NORMALISED RATIO INCREASED [None]
